FAERS Safety Report 5213745-0 (Version None)
Quarter: 2007Q1

REPORT INFORMATION
  Report Type: 
  Country: None (occurrence: None)
  Receive Date: 20070119
  Receipt Date: 20070108
  Transmission Date: 20070707
  Serious: Yes (Other)
  Sender: FDA-Public Use
  Company Number: GB-PFIZER INC-2007002357

PATIENT
  Age: 48 Year
  Sex: Female

DRUGS (8)
  1. GABAPENTIN [Suspect]
     Indication: NEURALGIA
     Route: 048
  2. AMITRIPTYLINE HYDROCHLORIDE [Suspect]
     Indication: NEURALGIA
     Route: 048
  3. CLOTRIMAZOLE [Concomitant]
  4. CODEINE PHOSPHATE [Concomitant]
  5. DICLOFENAC SODIUM [Concomitant]
  6. LANSOPRAZOLE [Concomitant]
     Indication: DYSPEPSIA
     Route: 048
  7. PARACETAMOL [Concomitant]
  8. TAMOXIFEN CITRATE [Concomitant]
     Indication: BREAST CANCER
     Route: 048

REACTIONS (4)
  - BALANCE DISORDER [None]
  - HYPERTONIA [None]
  - LOSS OF CONTROL OF LEGS [None]
  - MOTOR DYSFUNCTION [None]
